FAERS Safety Report 8315807-8 (Version None)
Quarter: 2012Q2

REPORT INFORMATION
  Report Type: 
  Country: None (occurrence: None)
  Receive Date: 20120427
  Receipt Date: 20120417
  Transmission Date: 20120825
  Serious: Yes (Other)
  Sender: FDA-Public Use
  Company Number: US-BRISTOL-MYERS SQUIBB COMPANY-16533135

PATIENT
  Age: 82 Year
  Sex: Female
  Weight: 49 kg

DRUGS (2)
  1. ONGLYZA [Suspect]
     Indication: TYPE 2 DIABETES MELLITUS
     Dates: start: 20100101
  2. LETROZOLE [Concomitant]

REACTIONS (7)
  - CATARACT [None]
  - HERPES ZOSTER [None]
  - FATIGUE [None]
  - IMPAIRED HEALING [None]
  - EYE SWELLING [None]
  - ONYCHOMYCOSIS [None]
  - DIZZINESS [None]
